FAERS Safety Report 4905814-7 (Version None)
Quarter: 2006Q1

REPORT INFORMATION
  Report Type: 
  Country: None (occurrence: None)
  Receive Date: 20060208
  Receipt Date: 20060203
  Transmission Date: 20060701
  Serious: Yes (Other)
  Sender: FDA-Public Use
  Company Number: FR-MERCK-0602FRA00008

PATIENT
  Age: 58 Year
  Sex: Female

DRUGS (4)
  1. FOSAMAX [Suspect]
     Indication: OSTEOPOROSIS
     Route: 048
     Dates: end: 20050401
  2. FOSAMAX [Suspect]
     Route: 048
     Dates: start: 20060129, end: 20060129
  3. ASPIRIN LYSINE [Concomitant]
     Route: 048
  4. TRIMETAZIDINE HYDROCHLORIDE [Concomitant]
     Route: 048

REACTIONS (2)
  - ABDOMINAL PAIN [None]
  - LOCALISED OEDEMA [None]
